FAERS Safety Report 10743835 (Version 2)
Quarter: 2015Q1

REPORT INFORMATION
  Report Type: Spontaneous
  Country: JP (occurrence: JP)
  Receive Date: 20150128
  Receipt Date: 20150203
  Transmission Date: 20150721
  Serious: Yes (Death, Hospitalization, Other)
  Sender: FDA-Public Use
  Company Number: JP-ROCHE-1525451

PATIENT
  Age: 34 Year
  Sex: Female
  Weight: 53 kg

DRUGS (3)
  1. TEMODAL [Concomitant]
     Active Substance: TEMOZOLOMIDE
     Indication: ANAPLASTIC ASTROCYTOMA
     Route: 041
     Dates: start: 201208, end: 201406
  2. AVASTIN [Suspect]
     Active Substance: BEVACIZUMAB
     Indication: ANAPLASTIC ASTROCYTOMA
     Route: 041
     Dates: start: 20130722, end: 20140623
  3. TEMODAL [Concomitant]
     Active Substance: TEMOZOLOMIDE
     Indication: ANAPLASTIC ASTROCYTOMA
     Route: 048
     Dates: start: 201208, end: 201406

REACTIONS (4)
  - Malignant glioma [Fatal]
  - Large intestine perforation [Unknown]
  - Bladder perforation [Unknown]
  - Abdominal abscess [Not Recovered/Not Resolved]

NARRATIVE: CASE EVENT DATE: 20140702
